FAERS Safety Report 4747908-5 (Version None)
Quarter: 2005Q3

REPORT INFORMATION
  Report Type: 
  Country: None (occurrence: None)
  Receive Date: 20050818
  Receipt Date: 20050509
  Transmission Date: 20060218
  Serious: No
  Sender: FDA-Public Use
  Company Number: US-BRISTOL-MYERS SQUIBB COMPANY-12960290

PATIENT
  Age: 46 Year
  Sex: Female
  Weight: 59 kg

DRUGS (7)
  1. CYTOXAN [Suspect]
     Indication: BREAST CANCER
  2. METHOTREXATE [Suspect]
     Indication: BREAST CANCER
  3. FLUOROURACIL [Suspect]
  4. RADIATION THERAPY [Concomitant]
     Indication: BREAST CANCER
  5. ACTONEL [Concomitant]
  6. ZOLOFT [Concomitant]
  7. ARIMIDEX [Concomitant]

REACTIONS (3)
  - AMNESIA [None]
  - INSOMNIA [None]
  - MEMORY IMPAIRMENT [None]
